FAERS Safety Report 6009919-1 (Version None)
Quarter: 2008Q4

REPORT INFORMATION
  Report Type: 
  Country: None (occurrence: None)
  Receive Date: 20081217
  Receipt Date: 20081217
  Transmission Date: 20090506
  Serious: No
  Sender: FDA-Public Use
  Company Number: None

PATIENT
  Age: 65 Year
  Sex: Female
  Weight: 65.7716 kg

DRUGS (1)
  1. ACTONEL [Suspect]
     Indication: RESORPTION BONE INCREASED
     Dosage: 1 TAB A MONTH
     Dates: start: 20081025

REACTIONS (4)
  - BACK PAIN [None]
  - DYSPEPSIA [None]
  - DYSPNOEA [None]
  - MOVEMENT DISORDER [None]
